FAERS Safety Report 24585058 (Version 2)
Quarter: 2024Q4

REPORT INFORMATION
  Report Type: Report from Study
  Country: JP (occurrence: JP)
  Receive Date: 20241106
  Receipt Date: 20241112
  Transmission Date: 20250114
  Serious: Yes (Hospitalization)
  Sender: BAXTER
  Company Number: JP-BAXTER-2024BAX027080

PATIENT
  Age: 67 Year
  Sex: Female
  Weight: 56.8 kg

DRUGS (29)
  1. CYCLOPHOSPHAMIDE [Suspect]
     Active Substance: CYCLOPHOSPHAMIDE
     Indication: Diffuse large B-cell lymphoma stage IV
     Dosage: 1237 MG, EVERY 3 WEEKS
     Route: 042
     Dates: start: 20240306, end: 20240704
  2. DOXORUBICIN [Suspect]
     Active Substance: DOXORUBICIN
     Indication: Diffuse large B-cell lymphoma stage IV
     Dosage: 82 MG, EVERY 3 WEEKS
     Route: 042
     Dates: start: 20240306, end: 20240704
  3. PREDNISONE [Suspect]
     Active Substance: PREDNISONE
     Indication: Diffuse large B-cell lymphoma stage IV
     Dosage: 100 MG DAILY C1-6, DAY 1-5, EVERY 1 DAYS
     Route: 048
     Dates: start: 20240306, end: 20240704
  4. RITUXIMAB [Suspect]
     Active Substance: RITUXIMAB
     Indication: Diffuse large B-cell lymphoma stage IV
     Dosage: 618 MG, EVERY 3 WEEKS
     Route: 042
     Dates: start: 20240306, end: 20240704
  5. EPCORITAMAB [Suspect]
     Active Substance: EPCORITAMAB
     Indication: Diffuse large B-cell lymphoma stage IV
     Dosage: 48 MG C1 (STEP-UP), CYCLES 2 - 4 (21-DAY CYCLE, WEEKLY DOSE), C5 - 8 (21-DAY CYCLE, EVERY 3  WEEKS)
     Route: 058
     Dates: start: 20240307, end: 20240829
  6. VINCRISTINE [Suspect]
     Active Substance: VINCRISTINE
     Indication: Diffuse large B-cell lymphoma stage IV
     Dosage: 2 MG, EVERY 3 WEEKS
     Route: 042
     Dates: start: 20240306, end: 20240704
  7. VEMLIDY [Concomitant]
     Active Substance: TENOFOVIR ALAFENAMIDE FUMARATE
     Indication: Antiviral prophylaxis
     Dosage: 25 MG, EVERY 1 DAYS
     Route: 065
     Dates: start: 20240219
  8. GRANISETRON [Concomitant]
     Active Substance: GRANISETRON
     Indication: Prophylaxis of nausea and vomiting
     Dosage: 1 MG, AS NECESSARY
     Route: 065
     Dates: start: 20240306
  9. FOSNETUPITANT CHLORIDE HYDROCHLORIDE [Concomitant]
     Active Substance: FOSNETUPITANT CHLORIDE HYDROCHLORIDE
     Indication: Prophylaxis of nausea and vomiting
     Dosage: 235 MG, AS NECESSARY
     Route: 065
     Dates: start: 20240306
  10. LANSOPRAZOLE [Concomitant]
     Active Substance: LANSOPRAZOLE
     Indication: Gastritis prophylaxis
     Dosage: 15 MG, EVERY 1 DAYS
     Route: 065
     Dates: start: 20240306
  11. SULFAMETHOXAZOLE\TRIMETHOPRIM [Concomitant]
     Active Substance: SULFAMETHOXAZOLE\TRIMETHOPRIM
     Indication: Infection prophylaxis
     Dosage: 80 MG, EVERY 1 DAYS
     Route: 065
     Dates: start: 20240306
  12. FLUCONAZOLE [Concomitant]
     Active Substance: FLUCONAZOLE
     Indication: Infection prophylaxis
     Dosage: 100 MG, EVERY 1 DAYS
     Route: 065
     Dates: start: 20240306
  13. ACYCLOVIR [Concomitant]
     Active Substance: ACYCLOVIR
     Indication: Infection prophylaxis
     Dosage: 200 MG, 2/DAYS
     Route: 065
     Dates: start: 20240306
  14. SULPIRIDE [Concomitant]
     Active Substance: SULPIRIDE
     Indication: Gastritis prophylaxis
     Dosage: 50 MG, 3/DAYS
     Route: 065
     Dates: start: 20240306
  15. MAGNESIUM OXIDE [Concomitant]
     Active Substance: MAGNESIUM OXIDE
     Indication: Constipation prophylaxis
     Dosage: 500 MG, AS NECESSARY
     Route: 065
     Dates: start: 20240306
  16. ELOBIXIBAT [Concomitant]
     Active Substance: ELOBIXIBAT
     Indication: Constipation prophylaxis
     Dosage: 10 MG, EVERY 1 DAYS
     Route: 065
     Dates: start: 20240314
  17. ATOVAQUONE [Concomitant]
     Active Substance: ATOVAQUONE
     Indication: Infection prophylaxis
     Dosage: 2 PACKS, EVERY 1 DAYS
     Route: 065
     Dates: start: 20240314
  18. RAMELTEON [Concomitant]
     Active Substance: RAMELTEON
     Indication: Insomnia
     Dosage: 8 MG, AS NECESSARY
     Route: 065
     Dates: start: 20240316
  19. BELSOMRA [Concomitant]
     Active Substance: SUVOREXANT
     Indication: Insomnia
     Dosage: 10 MG, AS NECESSARY
     Route: 065
     Dates: start: 20240319
  20. HEPARINOID [Concomitant]
     Indication: Dry skin prophylaxis
     Dosage: 1 APPLICATION, AS NECESSARY
     Route: 065
     Dates: start: 20240331
  21. BILASTINE [Concomitant]
     Active Substance: BILASTINE
     Indication: Prophylaxis
     Dosage: 20 MG, AS NECESSARY
     Route: 065
     Dates: start: 20240331
  22. CLOBETASOL PROPIONATE [Concomitant]
     Active Substance: CLOBETASOL PROPIONATE
     Indication: Injection site reaction
     Dosage: 1 APPLICATION, AS NECESSARY
     Route: 065
     Dates: start: 20240513
  23. CARBOCYSTEINE [Concomitant]
     Active Substance: CARBOCYSTEINE
     Indication: Cough
     Dosage: 500 MG, 3/DAYS
     Route: 065
     Dates: start: 20240913
  24. DEXTROMETHORPHAN HBR NISSIN [Concomitant]
     Indication: Cough
     Dosage: 15 MG, 3/DAYS
     Route: 065
     Dates: start: 20241001
  25. TRELEGY ELLIPTA [Concomitant]
     Active Substance: FLUTICASONE FUROATE\UMECLIDINIUM BROMIDE\VILANTEROL TRIFENATATE
     Indication: Cough
     Dosage: 1 PACK, EVERY 1 DAYS
     Route: 065
     Dates: start: 20241001
  26. CLARITHROMYCIN [Concomitant]
     Active Substance: CLARITHROMYCIN
     Indication: Cough
     Dosage: 200 MG, 2/DAYS
     Route: 065
     Dates: start: 20241001
  27. TRANEXAMIC ACID [Concomitant]
     Active Substance: TRANEXAMIC ACID
     Indication: Cough
     Dosage: 500 MG, 3/DAYS
     Route: 065
     Dates: start: 20240913
  28. MONTELUKAST [Concomitant]
     Active Substance: MONTELUKAST
     Indication: Cough
     Dosage: 10 MG, EVERY 1 DAYS
     Route: 065
     Dates: start: 20240913
  29. Mucosal [Concomitant]
     Indication: Cough
     Dosage: 15 MG, 3/DAYS
     Route: 065
     Dates: start: 20241016

REACTIONS (1)
  - COVID-19 [Recovered/Resolved]

NARRATIVE: CASE EVENT DATE: 20241023
